FAERS Safety Report 22654256 (Version 2)
Quarter: 2023Q2

REPORT INFORMATION
  Report Type: Report from Study
  Country: US (occurrence: US)
  Receive Date: 20230629
  Receipt Date: 20230630
  Transmission Date: 20230721
  Serious: No
  Sender: FDA-Public Use
  Company Number: US-002147023-NVSC2023US148427

PATIENT
  Sex: Male

DRUGS (1)
  1. CARBOPLATIN [Suspect]
     Active Substance: CARBOPLATIN
     Indication: Prostate cancer metastatic
     Dosage: UNK
     Route: 065

REACTIONS (3)
  - Ill-defined disorder [Unknown]
  - Loss of libido [Unknown]
  - Product use in unapproved indication [Unknown]
